FAERS Safety Report 14715871 (Version 2)
Quarter: 2018Q2

REPORT INFORMATION
  Report Type: Spontaneous
  Country: US (occurrence: US)
  Receive Date: 20180404
  Receipt Date: 20180411
  Transmission Date: 20180711
  Serious: No
  Sender: FDA-Public Use
  Company Number: US-AMGEN-USASP2018018154

PATIENT
  Age: 60 Year
  Sex: Female

DRUGS (1)
  1. PROLIA [Suspect]
     Active Substance: DENOSUMAB
     Indication: OSTEOPOROSIS POSTMENOPAUSAL
     Dosage: UNK
     Route: 065
     Dates: start: 201711, end: 201711

REACTIONS (6)
  - Drug intolerance [Unknown]
  - Dyspnoea [Recovering/Resolving]
  - Dry skin [Unknown]
  - Dizziness [Unknown]
  - Toothache [Unknown]
  - Acne [Unknown]

NARRATIVE: CASE EVENT DATE: 201711
